FAERS Safety Report 5053443-X (Version None)
Quarter: 2006Q3

REPORT INFORMATION
  Report Type: 
  Country: None (occurrence: None)
  Receive Date: 20060712
  Receipt Date: 20060628
  Transmission Date: 20061208
  Serious: Yes (Hospitalization)
  Sender: FDA-Public Use
  Company Number: 14331

PATIENT
  Age: 74 Year
  Sex: Female

DRUGS (8)
  1. METHOTREXATE [Suspect]
     Indication: BREAST CANCER
     Dosage: 80 MG ONCE IV
     Route: 042
     Dates: start: 20060330, end: 20060330
  2. FLUOROURACIL [Suspect]
     Indication: BREAST CANCER
     Dosage: 950 MG ONCE IV
     Route: 042
     Dates: start: 20060330, end: 20060330
  3. CYCLOPHOSPHAMIDE [Suspect]
     Indication: BREAST CANCER
     Dosage: 950 MG ONCE IV
     Route: 042
     Dates: start: 20060330, end: 20060330
  4. ASPIRIN [Concomitant]
  5. DIAZEPAM [Concomitant]
  6. HYDROXOCOBALAMIN [Concomitant]
  7. LANSOPRAZOLE [Concomitant]
  8. SIMVASTATIN [Concomitant]

REACTIONS (2)
  - LOWER RESPIRATORY TRACT INFECTION [None]
  - NEUTROPENIC SEPSIS [None]
